FAERS Safety Report 10464031 (Version 2)
Quarter: 2014Q3

REPORT INFORMATION
  Report Type: Spontaneous
  Country: JP (occurrence: None)
  Receive Date: 20140917
  Receipt Date: 20140930
  Transmission Date: 20150326
  Serious: Yes (Hospitalization)
  Sender: FDA-Public Use
  Company Number: JP-016950

PATIENT
  Age: 64 Year
  Sex: Male
  Weight: 90 kg

DRUGS (14)
  1. DEGARELIX (GONAX) 80 MG [Suspect]
     Active Substance: DEGARELIX
     Indication: PROSTATE CANCER
     Route: 058
     Dates: start: 201309, end: 20140813
  2. MYSLEE [Concomitant]
     Active Substance: ZOLPIDEM TARTRATE
  3. MUCOSTA [Concomitant]
     Active Substance: REBAMIPIDE
  4. NAIXAN [Concomitant]
     Active Substance: NAPROXEN SODIUM
  5. PURSENNIDE [Concomitant]
     Active Substance: SENNOSIDES A AND B CALCIUM
  6. OXYCONTIN [Concomitant]
     Active Substance: OXYCODONE HYDROCHLORIDE
  7. TENORMIN [Concomitant]
     Active Substance: ATENOLOL
  8. LUPRAC [Concomitant]
     Active Substance: TORSEMIDE
  9. TAKEPRON [Concomitant]
     Active Substance: LANSOPRAZOLE
  10. XTANDI [Suspect]
     Active Substance: ENZALUTAMIDE
     Indication: PROSTATE CANCER
     Route: 048
     Dates: start: 20140618, end: 20140623
  11. TAMSULOSIN [Concomitant]
     Active Substance: TAMSULOSIN
  12. PURSENNIDE [Concomitant]
     Active Substance: SENNOSIDES A AND B CALCIUM
  13. HARNAL [Concomitant]
     Active Substance: TAMSULOSIN HYDROCHLORIDE
  14. WARFARIN POTASSIUM [Concomitant]
     Active Substance: WARFARIN POTASSIUM

REACTIONS (4)
  - Haemorrhagic diathesis [None]
  - Haematuria [None]
  - Intentional product misuse [None]
  - Activated partial thromboplastin time prolonged [None]
